FAERS Safety Report 11820059 (Version 1)
Quarter: 2015Q4

REPORT INFORMATION
  Report Type: Spontaneous
  Country: US (occurrence: US)
  Receive Date: 20151210
  Receipt Date: 20151210
  Transmission Date: 20160305
  Serious: Yes (Other)
  Sender: FDA-Public Use
  Company Number: US-AMGEN-USASP2015130706

PATIENT
  Age: 59 Year
  Sex: Female

DRUGS (1)
  1. ENBREL [Suspect]
     Active Substance: ETANERCEPT
     Indication: RHEUMATOID ARTHRITIS
     Dosage: 50 MG, QWK
     Route: 065
     Dates: start: 201509

REACTIONS (9)
  - Systemic lupus erythematosus [Unknown]
  - Fatigue [Unknown]
  - Injection site bruising [Unknown]
  - Sjogren^s syndrome [Unknown]
  - Injection site erythema [Unknown]
  - Polymyositis [Unknown]
  - Scleroderma [Unknown]
  - Drug effect incomplete [Unknown]
  - Pain [Unknown]
